FAERS Safety Report 4845990-8 (Version None)
Quarter: 2005Q4

REPORT INFORMATION
  Report Type: 
  Country: None (occurrence: None)
  Receive Date: 20051206
  Receipt Date: 20050721
  Transmission Date: 20060501
  Serious: Yes (Other)
  Sender: FDA-Public Use
  Company Number: GB-AVENTIS-200514674EU

PATIENT
  Age: 75 Year
  Sex: Female

DRUGS (9)
  1. FRUSEMIDE [Suspect]
     Indication: HYPERTENSION
     Route: 048
     Dates: start: 20050527, end: 20050613
  2. ADCAL-D3 [Concomitant]
     Indication: OSTEOPOROSIS
     Route: 048
     Dates: start: 20050401
  3. ASPIRIN [Concomitant]
     Indication: PLATELET AGGREGATION
     Route: 048
  4. ATORVASTATIN CALCIUM [Concomitant]
     Indication: HYPERCHOLESTEROLAEMIA
     Route: 048
     Dates: start: 20050401
  5. CODEINE [Concomitant]
     Indication: PAIN
     Route: 048
     Dates: start: 20050401
  6. FLUOXETINE [Concomitant]
     Indication: DEPRESSION
     Route: 048
     Dates: start: 20050401
  7. ISOTARD XL [Concomitant]
     Route: 048
     Dates: start: 20050401
  8. LANSOPRAZOLE [Concomitant]
     Indication: DYSPEPSIA
     Route: 048
     Dates: start: 20050401
  9. NICORANDIL [Concomitant]
     Indication: CARDIAC FAILURE
     Route: 048

REACTIONS (1)
  - CYSTITIS [None]
